FAERS Safety Report 10678531 (Version 1)
Quarter: 2014Q4

REPORT INFORMATION
  Report Type: Report from Study
  Country: US (occurrence: US)
  Receive Date: 20141229
  Receipt Date: 20141229
  Transmission Date: 20150529
  Serious: Yes (Other)
  Sender: FDA-Public Use
  Company Number: US-BAYER-2014-188661

PATIENT
  Age: 39 Year
  Sex: Female

DRUGS (1)
  1. MIRENA [Suspect]
     Active Substance: LEVONORGESTREL
     Indication: CONTRACEPTION
     Dosage: 20 MCG/24HR, CONT
     Route: 015
     Dates: start: 1998, end: 2001

REACTIONS (17)
  - Alopecia [None]
  - Premature ageing [None]
  - Premature menopause [None]
  - Asthenia [None]
  - Depressed mood [None]
  - Unevaluable event [None]
  - Amnesia [None]
  - Tooth disorder [None]
  - Breast enlargement [None]
  - Pollakiuria [None]
  - Malaise [None]
  - Feeling abnormal [None]
  - Breast pain [None]
  - Blood oestrogen increased [None]
  - Ovarian cyst [None]
  - Bone disorder [None]
  - Weight increased [None]

NARRATIVE: CASE EVENT DATE: 2001
